FAERS Safety Report 6096167-2 (Version None)
Quarter: 2009Q1

REPORT INFORMATION
  Report Type: 
  Country: None (occurrence: None)
  Receive Date: 20090227
  Receipt Date: 20081001
  Transmission Date: 20090719
  Serious: No
  Sender: FDA-Public Use
  Company Number: A0748388A

PATIENT
  Age: 13 Year
  Sex: Female

DRUGS (2)
  1. LAMICTAL [Suspect]
     Indication: BIPOLAR DISORDER
     Dosage: 12.5MG IN THE MORNING
     Route: 048
     Dates: start: 20080710
  2. GEODON [Concomitant]
     Indication: BIPOLAR DISORDER
     Dosage: 120MG PER DAY
     Route: 048
     Dates: start: 20080116

REACTIONS (1)
  - URINE ODOUR ABNORMAL [None]
